FAERS Safety Report 10799653 (Version 1)
Quarter: 2015Q1

REPORT INFORMATION
  Report Type: Report from Study
  Country: US (occurrence: US)
  Receive Date: 20150216
  Receipt Date: 20150216
  Transmission Date: 20150721
  Serious: No
  Sender: FDA-Public Use
  Company Number: US-ABBVIE-14K-163-1239998-00

PATIENT
  Sex: Female

DRUGS (1)
  1. HUMIRA [Suspect]
     Active Substance: ADALIMUMAB
     Indication: PSORIATIC ARTHROPATHY
     Dates: start: 200908, end: 201207

REACTIONS (3)
  - Injection site swelling [Recovered/Resolved]
  - Injection site discolouration [Recovered/Resolved]
  - Drug hypersensitivity [Recovered/Resolved]
